FAERS Safety Report 19876983 (Version 1)
Quarter: 2021Q3

REPORT INFORMATION
  Report Type: Spontaneous
  Country: CA (occurrence: CA)
  Receive Date: 20210924
  Receipt Date: 20210924
  Transmission Date: 20211014
  Serious: Yes (Other)
  Sender: FDA-Public Use
  Company Number: CA-SA-2021SA313557

PATIENT
  Age: 45 Year
  Sex: Female
  Weight: 91 kg

DRUGS (5)
  1. ARIPIPRAZOLE. [Concomitant]
     Active Substance: ARIPIPRAZOLE
  2. TOPIRAMATE. [Concomitant]
     Active Substance: TOPIRAMATE
  3. ALPRAZOLAM. [Concomitant]
     Active Substance: ALPRAZOLAM
  4. ESCITALOPRAM [Concomitant]
     Active Substance: ESCITALOPRAM OXALATE
  5. DUPIXENT [Suspect]
     Active Substance: DUPILUMAB
     Indication: DERMATITIS ATOPIC
     Dosage: 300 MG, QW
     Route: 058

REACTIONS (3)
  - Scleritis [Recovered/Resolved]
  - Eye pruritus [Recovered/Resolved]
  - Off label use [Unknown]
